FAERS Safety Report 14636256 (Version 1)
Quarter: 2018Q1

REPORT INFORMATION
  Report Type: Spontaneous
  Country: FR (occurrence: FR)
  Receive Date: 20180314
  Receipt Date: 20180314
  Transmission Date: 20180509
  Serious: Yes (Other)
  Sender: FDA-Public Use
  Company Number: FR-MERCK KGAA-2043699

PATIENT
  Age: 65 Year
  Sex: Female

DRUGS (3)
  1. LEVOTHYROXINE SODIUM. [Suspect]
     Active Substance: LEVOTHYROXINE SODIUM
     Dates: start: 20170501
  2. LEVOTHYROXINE SODIUM. [Suspect]
     Active Substance: LEVOTHYROXINE SODIUM
  3. NOVOTHYROX [Suspect]
     Active Substance: LEVOTHYROXINE SODIUM
     Indication: HYPOTHYROIDISM
     Dates: start: 20170501

REACTIONS (20)
  - Sleep disorder [None]
  - Thyroxine increased [None]
  - Hyperthyroidism [None]
  - Surgery [None]
  - Blindness [None]
  - Musculoskeletal stiffness [None]
  - Blood thyroid stimulating hormone increased [None]
  - Chills [None]
  - Weight decreased [None]
  - Vertigo [Recovered/Resolved]
  - Myalgia [None]
  - Spinal pain [None]
  - Tachycardia [None]
  - Arthralgia [Recovering/Resolving]
  - Fatigue [None]
  - Dizziness [None]
  - Disturbance in attention [None]
  - Feeling abnormal [None]
  - Pain [None]
  - Jaw disorder [None]

NARRATIVE: CASE EVENT DATE: 201705
